FAERS Safety Report 23194448 (Version 1)
Quarter: 2023Q4

REPORT INFORMATION
  Report Type: Report from Study
  Country: CH (occurrence: CH)
  Receive Date: 20231117
  Receipt Date: 20231117
  Transmission Date: 20240110
  Serious: Yes (Other)
  Sender: FDA-Public Use
  Company Number: CH-ABBVIE-5496154

PATIENT
  Age: 75 Year
  Sex: Female

DRUGS (3)
  1. CARBIDOPA\LEVODOPA [Suspect]
     Active Substance: CARBIDOPA\LEVODOPA
     Indication: Parkinson^s disease
     Dosage: MD 4.5ML, CRD 2.4ML/H, ED 2.0ML?16H THERAPY
     Route: 050
     Dates: start: 20230629
  2. CARBIDOPA\LEVODOPA [Suspect]
     Active Substance: CARBIDOPA\LEVODOPA
     Dosage: MD 4.5ML, CRD 2.2ML/H, ED 2.5ML?16H THERAPY
     Route: 050
     Dates: start: 20230208, end: 20230629
  3. CARBIDOPA\LEVODOPA [Suspect]
     Active Substance: CARBIDOPA\LEVODOPA
     Route: 050
     Dates: start: 20221117

REACTIONS (4)
  - Cataract [Unknown]
  - Sedation complication [Unknown]
  - Dyskinesia [Recovering/Resolving]
  - Freezing phenomenon [Unknown]

NARRATIVE: CASE EVENT DATE: 20231114
